FAERS Safety Report 6291166-X (Version None)
Quarter: 2009Q3

REPORT INFORMATION
  Report Type: 
  Country: None (occurrence: None)
  Receive Date: 20090730
  Receipt Date: 20090723
  Transmission Date: 20100115
  Serious: Yes (Death)
  Sender: FDA-Public Use
  Company Number: B0585423A

PATIENT
  Age: 47 Year
  Sex: Male
  Weight: 63 kg

DRUGS (4)
  1. ABACAVIR [Suspect]
     Indication: HIV INFECTION
     Route: 048
     Dates: start: 19980814
  2. EFAVIRENZ [Concomitant]
     Indication: HIV INFECTION
     Route: 048
     Dates: start: 19980814
  3. ATAZANAVIR SULFATE [Concomitant]
     Indication: HIV INFECTION
     Route: 048
     Dates: start: 20070803
  4. RITONAVIR [Concomitant]
     Indication: HIV INFECTION
     Route: 048
     Dates: start: 20070803

REACTIONS (1)
  - MYOCARDIAL INFARCTION [None]
